FAERS Safety Report 4592219-4 (Version None)
Quarter: 2005Q1

REPORT INFORMATION
  Report Type: 
  Country: None (occurrence: None)
  Receive Date: 20050228
  Receipt Date: 20050216
  Transmission Date: 20050727
  Serious: Yes (Other)
  Sender: FDA-Public Use
  Company Number: APCDSS2002000799

PATIENT
  Sex: Female
  Weight: 38 kg

DRUGS (8)
  1. REMICADE [Suspect]
     Indication: CROHN'S DISEASE
     Route: 041
     Dates: start: 20020726
  2. PN TWIN NO 3 [Concomitant]
     Route: 042
  3. PN TWIN NO 3 [Concomitant]
     Route: 042
  4. PN TWIN NO 3 [Concomitant]
     Route: 042
  5. FERROMIA [Concomitant]
     Route: 049
  6. BIOSMIN [Concomitant]
     Route: 049
  7. TANNALBIN [Concomitant]
     Route: 049
  8. TOTAL PARENTAL NUTRITION [Concomitant]
     Route: 065

REACTIONS (8)
  - BACILLUS INFECTION [None]
  - BACTERAEMIA [None]
  - DRUG INEFFECTIVE [None]
  - ENTEROBACTER INFECTION [None]
  - HEPATOTOXICITY [None]
  - SEPSIS [None]
  - SYSTEMIC INFLAMMATORY RESPONSE SYNDROME [None]
  - TACHYCARDIA [None]
